FAERS Safety Report 6204458-7 (Version None)
Quarter: 2009Q2

REPORT INFORMATION
  Report Type: 
  Country: None (occurrence: None)
  Receive Date: 20090527
  Receipt Date: 20090513
  Transmission Date: 20091009
  Serious: Yes (Death, Other)
  Sender: FDA-Public Use
  Company Number: RS-GENENTECH-283664

PATIENT

DRUGS (13)
  1. ACTIVASE [Suspect]
     Indication: ACUTE MYOCARDIAL INFARCTION
     Dosage: 15 MG, UNK
     Route: 040
  2. ACTIVASE [Suspect]
     Dosage: 50 MG, UNK
     Route: 042
  3. ACTIVASE [Suspect]
     Dosage: 35 MG, UNK
     Route: 042
  4. ENOXAPARIN SODIUM [Suspect]
     Indication: ACUTE MYOCARDIAL INFARCTION
     Dosage: UNK
     Route: 040
  5. ENOXAPARIN SODIUM [Suspect]
     Dosage: 1 UNK, UNK
     Route: 058
  6. CLOPIDOGREL [Suspect]
     Indication: ACUTE MYOCARDIAL INFARCTION
     Dosage: UNK, UNK
  7. CLOPIDOGREL [Suspect]
     Dosage: 75 MG, UNK
  8. ACETYLSALICYLIC ACID SRT [Suspect]
     Indication: ACUTE MYOCARDIAL INFARCTION
     Dosage: UNK MG, UNK
  9. PROTON PUMP INHIBITORS [Concomitant]
     Indication: PROPHYLAXIS AGAINST GASTROINTESTINAL ULCER
     Dosage: UNK
  10. BETA BLOCKER (UNK INGREDIENTS) [Concomitant]
     Indication: DRUG USE FOR UNKNOWN INDICATION
     Dosage: UNK
  11. NITRATES NOS [Concomitant]
     Indication: DRUG USE FOR UNKNOWN INDICATION
     Dosage: UNK
  12. ACE-INHIBITOR [Concomitant]
     Indication: DRUG USE FOR UNKNOWN INDICATION
     Dosage: UNK
  13. STATINS NOS [Concomitant]
     Indication: DRUG USE FOR UNKNOWN INDICATION
     Dosage: UNK

REACTIONS (3)
  - DEATH [None]
  - HAEMORRHAGE [None]
  - HYPOTENSION [None]
